FAERS Safety Report 22373010 (Version 2)
Quarter: 2023Q2

REPORT INFORMATION
  Report Type: Report from Study
  Country: US (occurrence: US)
  Receive Date: 20230526
  Receipt Date: 20230613
  Transmission Date: 20230722
  Serious: Yes (Hospitalization)
  Sender: FDA-Public Use
  Company Number: US-PFIZER INC-US-GBT-021994

PATIENT
  Age: 18 Year
  Sex: Male

DRUGS (15)
  1. VOXELOTOR [Suspect]
     Active Substance: VOXELOTOR
     Indication: Sickle cell disease
     Dosage: 1500 MG, 1X/DAY
     Route: 048
     Dates: start: 20220309, end: 20230213
  2. VOXELOTOR [Suspect]
     Active Substance: VOXELOTOR
     Indication: Anaemia
  3. MORPHINE [Concomitant]
     Active Substance: MORPHINE
     Indication: Sickle cell disease
     Dosage: 15 MG, BID PRN
     Route: 048
     Dates: start: 20220124
  4. OXYCODONE [Concomitant]
     Active Substance: OXYCODONE
     Indication: Sickle cell disease
     Dosage: 10 MG, AS NEEDED
     Route: 048
     Dates: start: 20220124
  5. CHOLECALCIFEROL [Concomitant]
     Active Substance: CHOLECALCIFEROL
     Indication: Vitamin D deficiency
     Dosage: 2000 IU, 1X/DAY
     Route: 048
     Dates: start: 20150615
  6. CYCLOBENZAPRINE [Concomitant]
     Active Substance: CYCLOBENZAPRINE
     Indication: Sickle cell disease
     Dosage: 5 MG, 3X/DAY
     Route: 048
     Dates: start: 20210626
  7. FOLIC ACID [Concomitant]
     Active Substance: FOLIC ACID
     Indication: Sickle cell disease
     Dosage: 1 MG, 1X/DAY
     Route: 048
     Dates: start: 20210907
  8. IBUPROFEN [Concomitant]
     Active Substance: IBUPROFEN
     Indication: Sickle cell disease
     Dosage: 400 MG, AS NEEDED
     Route: 048
     Dates: start: 20180605, end: 20230220
  9. IBUPROFEN [Concomitant]
     Active Substance: IBUPROFEN
     Dosage: 600 MG, AS NEEDED
     Route: 048
     Dates: start: 20230220
  10. ACETAMINOPHEN [Concomitant]
     Active Substance: ACETAMINOPHEN
     Indication: Sickle cell disease
     Dosage: 650 MG, AS NEEDED
     Route: 048
     Dates: start: 20190812
  11. HYDROXYUREA [Concomitant]
     Active Substance: HYDROXYUREA
     Indication: Sickle cell disease
     Dosage: 1500 MG, 1X/DAY
     Route: 048
     Dates: start: 20220617
  12. SUMATRIPTAN [Concomitant]
     Active Substance: SUMATRIPTAN
     Indication: Migraine
     Dosage: 25 MG, AS NEEDED
     Route: 048
     Dates: start: 20200507
  13. BUPIVACAINE [Concomitant]
     Active Substance: BUPIVACAINE
     Indication: Osteonecrosis
     Dosage: 15 MG, SINGLE
     Route: 008
     Dates: start: 20230210, end: 20230210
  14. LIDOCAINE [Concomitant]
     Active Substance: LIDOCAINE
     Indication: Osteonecrosis
     Dosage: 100 MG, SINGLE, INFILTRATION
     Dates: start: 20230210, end: 20230210
  15. TRIAMCINOLONE ACETONIDE [Concomitant]
     Active Substance: TRIAMCINOLONE ACETONIDE
     Indication: Osteonecrosis
     Dosage: 40 MG, SINGLE
     Route: 014
     Dates: start: 20230210, end: 20230210

REACTIONS (4)
  - Acute chest syndrome [Recovered/Resolved]
  - Pain [Recovered/Resolved]
  - Headache [Recovered/Resolved]
  - Nausea [Recovered/Resolved]

NARRATIVE: CASE EVENT DATE: 20230201
